FAERS Safety Report 10957115 (Version 6)
Quarter: 2022Q2

REPORT INFORMATION
  Report Type: Spontaneous
  Country: US (occurrence: US)
  Receive Date: 20150326
  Receipt Date: 20220520
  Transmission Date: 20220721
  Serious: No
  Sender: FDA-Public Use
  Company Number: US-PFIZER INC-2015102699

PATIENT
  Age: 74 Year
  Sex: Female

DRUGS (1)
  1. PREMARIN [Suspect]
     Active Substance: ESTROGENS, CONJUGATED
     Dosage: 0.625 MG, DAILY

REACTIONS (4)
  - Influenza [Unknown]
  - Malaise [Unknown]
  - Fatigue [Unknown]
  - Off label use [Unknown]
